FAERS Safety Report 12084717 (Version 1)
Quarter: 2016Q1

REPORT INFORMATION
  Report Type: Spontaneous
  Country: US (occurrence: US)
  Receive Date: 20160217
  Receipt Date: 20160217
  Transmission Date: 20160526
  Serious: No
  Sender: FDA-Public Use
  Company Number: US-BAYER-2016-020710

PATIENT
  Age: 36 Year
  Sex: Female

DRUGS (1)
  1. ALEVE [Suspect]
     Active Substance: NAPROXEN SODIUM
     Indication: HEADACHE
     Dosage: 3 DF WITHIN AN HOURS
     Route: 048
     Dates: start: 20160201

REACTIONS (1)
  - Product use issue [None]

NARRATIVE: CASE EVENT DATE: 20160201
